FAERS Safety Report 7341057-8 (Version None)
Quarter: 2011Q1

REPORT INFORMATION
  Report Type: 
  Country: None (occurrence: None)
  Receive Date: 20110228
  Receipt Date: 20110217
  Transmission Date: 20110831
  Serious: Yes (Other)
  Sender: FDA-Public Use
  Company Number: 2011SP007961

PATIENT
  Age: 71 Year
  Sex: Female

DRUGS (6)
  1. METFORMIN  (CON.) [Concomitant]
  2. LOSARTAN POTASSIUM [Suspect]
     Indication: PRODUCT USED FOR UNKNOWN INDICATION
  3. LOSARTAN(CON.) [Concomitant]
  4. ALLI (CON.  ) [Concomitant]
  5. MIRALAX [Suspect]
     Indication: CONSTIPATION
     Dosage: 17 GM, ONCE, PO
     Route: 048
     Dates: start: 20110216
  6. ZOCOR (CON.  ) [Concomitant]

REACTIONS (6)
  - DYSPHAGIA [None]
  - RASH [None]
  - PHARYNGEAL OEDEMA [None]
  - CHILLS [None]
  - MYALGIA [None]
  - PRURITUS [None]
